FAERS Safety Report 7721061-8 (Version None)
Quarter: 2011Q3

REPORT INFORMATION
  Report Type: 
  Country: None (occurrence: None)
  Receive Date: 20110831
  Receipt Date: 20110107
  Transmission Date: 20111222
  Serious: No
  Sender: FDA-Public Use
  Company Number: US-BAYER-2011-002571

PATIENT
  Age: 34 Year
  Sex: Female

DRUGS (2)
  1. MIRENA [Suspect]
     Indication: MENORRHAGIA
     Dosage: 20 MCG/24HR, UNK
     Route: 015
     Dates: start: 20101214
  2. MIRENA [Suspect]
     Indication: DYSMENORRHOEA

REACTIONS (3)
  - POST PROCEDURAL HAEMORRHAGE [None]
  - UTERINE SPASM [None]
  - MENOMETRORRHAGIA [None]
